FAERS Safety Report 11048986 (Version 1)
Quarter: 2015Q2

REPORT INFORMATION
  Report Type: Report from Study
  Country: NL (occurrence: NL)
  Receive Date: 20150420
  Receipt Date: 20150420
  Transmission Date: 20150821
  Serious: Yes (Other)
  Sender: FDA-Public Use
  Company Number: NL-ABBVIE-15P-116-1337874-00

PATIENT
  Age: 78 Year
  Sex: Male
  Weight: 78 kg

DRUGS (2)
  1. LUCRIN [Suspect]
     Active Substance: LEUPROLIDE ACETATE
     Indication: PROSTATE CANCER
     Route: 058
     Dates: start: 20141027
  2. BICALUTAMIDE. [Concomitant]
     Active Substance: BICALUTAMIDE
     Indication: PROSTATE CANCER
     Route: 048

REACTIONS (8)
  - Gynaecomastia [Not Recovered/Not Resolved]
  - Cough [Recovered/Resolved]
  - Cough [Not Recovered/Not Resolved]
  - Irritability [Not Recovered/Not Resolved]
  - Mood swings [Not Recovered/Not Resolved]
  - Prostatic specific antigen increased [Not Recovered/Not Resolved]
  - Metastases to spine [Not Recovered/Not Resolved]
  - Back pain [Not Recovered/Not Resolved]

NARRATIVE: CASE EVENT DATE: 201411
